FAERS Safety Report 8984522 (Version 4)
Quarter: 2013Q1

REPORT INFORMATION
  Report Type: Spontaneous
  Country: US (occurrence: US)
  Receive Date: 20121226
  Receipt Date: 20130306
  Transmission Date: 20140127
  Serious: No
  Sender: FDA-Public Use
  Company Number: US-009507513-1212USA006861

PATIENT
  Age: 57 None
  Sex: Male

DRUGS (3)
  1. PEGINTRON [Suspect]
     Indication: HEPATITIS C
     Dosage: UNK
     Dates: start: 20121214
  2. RIBAVIRIN [Suspect]
     Indication: HEPATITIS C
     Dosage: UNK
     Route: 048
     Dates: start: 20121214
  3. VICTRELIS [Suspect]
     Indication: HEPATITIS C
     Dosage: UNK
     Dates: start: 20130104

REACTIONS (12)
  - Hypersensitivity [Unknown]
  - Salivary gland disorder [Unknown]
  - Parosmia [Unknown]
  - Dysgeusia [Unknown]
  - Mental disorder [Unknown]
  - Pruritus [Unknown]
  - Pyrexia [Unknown]
  - Diarrhoea [Unknown]
  - Diarrhoea [Unknown]
  - Diarrhoea [Unknown]
  - Constipation [Unknown]
  - Weight increased [Unknown]
